FAERS Safety Report 7361575-6 (Version None)
Quarter: 2011Q1

REPORT INFORMATION
  Report Type: 
  Country: None (occurrence: None)
  Receive Date: 20110309
  Receipt Date: 20110221
  Transmission Date: 20110831
  Serious: Yes (Hospitalization)
  Sender: FDA-Public Use
  Company Number: 2011MA001604

PATIENT
  Age: 20 Year
  Sex: Female

DRUGS (1)
  1. IBUPROFEN [Suspect]
     Dosage: 600 MG; PO
     Route: 048

REACTIONS (5)
  - RESPIRATORY RATE INCREASED [None]
  - RASH MACULO-PAPULAR [None]
  - HEART RATE INCREASED [None]
  - DYSPNOEA [None]
  - KOUNIS SYNDROME [None]
